FAERS Safety Report 6712972-0 (Version None)
Quarter: 2010Q2

REPORT INFORMATION
  Report Type: 
  Country: None (occurrence: None)
  Receive Date: 20100505
  Receipt Date: 20100505
  Transmission Date: 20101027
  Serious: Yes (Other)
  Sender: FDA-Public Use
  Company Number: None

PATIENT
  Age: 6 Year
  Sex: Female
  Weight: 29.4838 kg

DRUGS (4)
  1. CHILDREN'S TYLENOL PLUS MULTI-SYMPTOM COLD - GRAPE MCNEIL-PPC, INC / T [Suspect]
     Indication: COUGH
     Dosage: 2 TSP EVERY 4 HOURS PO
     Route: 048
     Dates: start: 20100425, end: 20100501
  2. CHILDREN'S TYLENOL PLUS MULTI-SYMPTOM COLD - GRAPE MCNEIL-PPC, INC / T [Suspect]
     Indication: SNEEZING
     Dosage: 2 TSP EVERY 4 HOURS PO
     Route: 048
     Dates: start: 20100425, end: 20100501
  3. CHILDREN'S TYLENOL PLUS MULTI-SYMPTOM COLD - D-FREE MCNEIL-PPC, INC / [Suspect]
     Indication: COUGH
     Dosage: 2 TSP EVERY 4 HOURS PO
     Route: 048
     Dates: start: 20100419, end: 20100424
  4. CHILDREN'S TYLENOL PLUS MULTI-SYMPTOM COLD - D-FREE MCNEIL-PPC, INC / [Suspect]
     Indication: SNEEZING
     Dosage: 2 TSP EVERY 4 HOURS PO
     Route: 048
     Dates: start: 20100419, end: 20100424

REACTIONS (2)
  - DRUG INEFFECTIVE [None]
  - PRODUCT QUALITY ISSUE [None]
